FAERS Safety Report 9088772 (Version 1)
Quarter: 2013Q1

REPORT INFORMATION
  Report Type: Spontaneous
  Country: IT (occurrence: IT)
  Receive Date: 20130131
  Receipt Date: 20130131
  Transmission Date: 20140127
  Serious: Yes (Hospitalization)
  Sender: FDA-Public Use
  Company Number: PHHY2013IT007890

PATIENT
  Sex: Female

DRUGS (2)
  1. TRAMADOL [Suspect]
  2. NIMESULIDE [Suspect]

REACTIONS (2)
  - Gastritis [Recovering/Resolving]
  - Vomiting [Recovering/Resolving]
